FAERS Safety Report 4359473-5 (Version None)
Quarter: 2004Q2

REPORT INFORMATION
  Report Type: 
  Country: None (occurrence: None)
  Receive Date: 20040511
  Receipt Date: 20040424
  Transmission Date: 20050107
  Serious: Yes (Hospitalization)
  Sender: FDA-Public Use
  Company Number: A-CH2003-03287

PATIENT
  Age: 31 Year
  Sex: Female
  Weight: 82 kg

DRUGS (9)
  1. TRACLEER [Suspect]
     Indication: PULMONARY HYPERTENSION
     Dosage: 125 MG, BID, ORAL
     Route: 048
     Dates: start: 20030721, end: 20030824
  2. FLOLAN [Concomitant]
  3. COUMADIN [Concomitant]
  4. LASIX [Concomitant]
  5. DIFFU K (POTASSIUM) [Concomitant]
  6. PREDNISONE TAB [Concomitant]
  7. OXYGEN (OXYGEN) [Concomitant]
  8. PLAQUENIL [Concomitant]
  9. OMEPRAZOLE [Concomitant]

REACTIONS (16)
  - ABORTION INDUCED [None]
  - ASPARTATE AMINOTRANSFERASE INCREASED [None]
  - BLOOD ALKALINE PHOSPHATASE INCREASED [None]
  - CARDIOMEGALY [None]
  - COMPLICATIONS OF MATERNAL EXPOSURE TO THERAPEUTIC DRUGS [None]
  - DRUG EXPOSURE DURING PREGNANCY [None]
  - DYSPNOEA EXACERBATED [None]
  - GAMMA-GLUTAMYLTRANSFERASE INCREASED [None]
  - HAEMOLYTIC ANAEMIA [None]
  - MALAISE [None]
  - PREGNANCY [None]
  - PULMONARY HYPERTENSION [None]
  - RASH [None]
  - SYSTEMIC LUPUS ERYTHEMATOSUS RASH [None]
  - TACHYCARDIA [None]
  - THROMBOCYTOPENIA [None]
